FAERS Safety Report 13037408 (Version 1)
Quarter: 2016Q4

REPORT INFORMATION
  Report Type: Spontaneous
  Country: IT (occurrence: IT)
  Receive Date: 20161216
  Receipt Date: 20161216
  Transmission Date: 20170207
  Serious: No
  Sender: FDA-Public Use
  Company Number: IT-ABBVIE-16P-083-1814364-00

PATIENT
  Age: 35 Year
  Sex: Female

DRUGS (1)
  1. KLACID [Suspect]
     Active Substance: CLARITHROMYCIN
     Indication: PRODUCT USED FOR UNKNOWN INDICATION
     Route: 048
     Dates: start: 20161028

REACTIONS (1)
  - Burning mouth syndrome [Unknown]

NARRATIVE: CASE EVENT DATE: 20161028
